FAERS Safety Report 17597827 (Version 1)
Quarter: 2020Q1

REPORT INFORMATION
  Report Type: Spontaneous
  Country: US (occurrence: US)
  Receive Date: 20200326
  Receipt Date: 20200326
  Transmission Date: 20200409
  Serious: No
  Sender: FDA-Public Use
  Company Number: None

PATIENT
  Age: 25 Year
  Sex: Male

DRUGS (6)
  1. FLUTICASONE. [Concomitant]
     Active Substance: FLUTICASONE
  2. GLATIRAMER 40MG/ML SYR [Suspect]
     Active Substance: GLATIRAMER
     Indication: MULTIPLE SCLEROSIS
     Dosage: 1 SYR TIW SQ
     Route: 058
     Dates: start: 20150801
  3. CHANTIX [Concomitant]
     Active Substance: VARENICLINE TARTRATE
  4. CLINDAMYCIN. [Concomitant]
     Active Substance: CLINDAMYCIN
  5. OMEGA 3 ACID [Concomitant]
  6. EZETIMBE [Concomitant]
     Active Substance: EZETIMIBE

REACTIONS (1)
  - Asthma [None]

NARRATIVE: CASE EVENT DATE: 20200101
